FAERS Safety Report 7949172-2 (Version None)
Quarter: 2011Q4

REPORT INFORMATION
  Report Type: 
  Country: None (occurrence: None)
  Receive Date: 20111129
  Receipt Date: 20111129
  Transmission Date: 20120403
  Serious: No
  Sender: FDA-Public Use
  Company Number: None

PATIENT
  Sex: Male

DRUGS (3)
  1. CIMZIA [Suspect]
     Dosage: 200MG/ML INJECT 200MG SUBCUTANEOUSLY EVERY OTHER WEEK
     Route: 058
     Dates: start: 20111117
  2. PREDNISONE TAB [Suspect]
  3. METHOTREXATE [Suspect]

REACTIONS (1)
  - PARAESTHESIA [None]
